FAERS Safety Report 6520658-0 (Version None)
Quarter: 2009Q4

REPORT INFORMATION
  Report Type: 
  Country: None (occurrence: None)
  Receive Date: 20091229
  Receipt Date: 20091221
  Transmission Date: 20100525
  Serious: Yes (Other)
  Sender: FDA-Public Use
  Company Number: BR-TEVA-218603ISR

PATIENT
  Age: 18 Year
  Sex: Male

DRUGS (3)
  1. FUROSEMIDE [Suspect]
     Route: 048
  2. NANDROLONE DECANOATE [Suspect]
     Route: 048
  3. STANOZOLOL [Suspect]

REACTIONS (1)
  - RETINAL VEIN OCCLUSION [None]
